FAERS Safety Report 15835277 (Version 1)
Quarter: 2019Q1

REPORT INFORMATION
  Report Type: Report from Study
  Country: JP (occurrence: JP)
  Receive Date: 20190116
  Receipt Date: 20190116
  Transmission Date: 20190417
  Serious: Yes (Hospitalization)
  Sender: FDA-Public Use
  Company Number: JP-BAXTER-2019BAX000939

PATIENT
  Age: 63 Year
  Sex: Male
  Weight: 56 kg

DRUGS (27)
  1. IMATINIB MESILATE [Concomitant]
     Active Substance: IMATINIB MESYLATE
     Indication: PRODUCT USED FOR UNKNOWN INDICATION
     Dosage: TABLET; REASON FOR DISCONTINUATION: START OF CONDITIONING REGIMEN
     Route: 065
     Dates: start: 20140606, end: 20140723
  2. ICLUSIG [Suspect]
     Active Substance: PONATINIB
     Dosage: TABLET
     Route: 048
     Dates: start: 20170428, end: 20170511
  3. DOXORUBICIN HYDROCHLORIDE. [Suspect]
     Active Substance: DOXORUBICIN HYDROCHLORIDE
     Dosage: REMISSION INDUCTION
     Route: 065
     Dates: start: 20170524, end: 20170526
  4. ONCOVIN [Suspect]
     Active Substance: VINCRISTINE SULFATE
     Indication: ACUTE LYMPHOCYTIC LEUKAEMIA
     Dosage: REMISSION INDUCTION
     Route: 065
     Dates: start: 20170428, end: 20170511
  5. ONCOVIN [Suspect]
     Active Substance: VINCRISTINE SULFATE
     Dosage: REMISSION INDUCTION
     Route: 065
     Dates: start: 20170524, end: 20170526
  6. SPRYCEL [Concomitant]
     Active Substance: DASATINIB
     Indication: PRODUCT USED FOR UNKNOWN INDICATION
     Dosage: REASON FOR DISCONTINUATION: INTOLERANCE
     Route: 065
     Dates: start: 20140506, end: 20170427
  7. ENDOXAN 1G [Suspect]
     Active Substance: CYCLOPHOSPHAMIDE
     Dosage: REMISSION INDUCTION
     Route: 065
     Dates: start: 20170524, end: 20170526
  8. ENDOXAN 1G [Suspect]
     Active Substance: CYCLOPHOSPHAMIDE
     Dosage: REMISSION INDUCTION
     Route: 065
     Dates: start: 20170620, end: 20170703
  9. ONCOVIN [Suspect]
     Active Substance: VINCRISTINE SULFATE
     Dosage: REMISSION INDUCTION
     Route: 065
     Dates: start: 20140609, end: 20140630
  10. DEXAMETHASONE SODIUM PHOSPHATE. [Suspect]
     Active Substance: DEXAMETHASONE SODIUM PHOSPHATE
     Indication: ACUTE LYMPHOCYTIC LEUKAEMIA
     Dosage: REMISSION INDUCTION
     Route: 065
     Dates: start: 20170428, end: 20170511
  11. PARACETAMOL [Concomitant]
     Active Substance: ACETAMINOPHEN
     Indication: PRODUCT USED FOR UNKNOWN INDICATION
     Dosage: TABLET
     Route: 065
  12. DASATINIB HYDRATE [Concomitant]
     Route: 065
     Dates: start: 20150331, end: 20150915
  13. ENDOXAN 1G [Suspect]
     Active Substance: CYCLOPHOSPHAMIDE
     Dosage: REMISSION INDUCTION
     Route: 065
     Dates: start: 20140609, end: 20140630
  14. ICLUSIG [Suspect]
     Active Substance: PONATINIB
     Dosage: TABLET
     Route: 048
     Dates: start: 20170620, end: 20170730
  15. DOXORUBICIN HYDROCHLORIDE. [Suspect]
     Active Substance: DOXORUBICIN HYDROCHLORIDE
     Dosage: REMISSION INDUCTION
     Route: 065
     Dates: start: 20170620, end: 20170703
  16. DASATINIB HYDRATE [Concomitant]
     Indication: ACUTE LYMPHOCYTIC LEUKAEMIA
     Route: 065
     Dates: start: 20140506, end: 20140522
  17. ICLUSIG [Suspect]
     Active Substance: PONATINIB
     Indication: ACUTE LYMPHOCYTIC LEUKAEMIA
     Dosage: TABLET
     Route: 048
     Dates: start: 20170524, end: 20170619
  18. CYLOCIDE [Suspect]
     Active Substance: CYTARABINE
     Indication: PRODUCT USED FOR UNKNOWN INDICATION
     Route: 065
  19. DOXORUBICIN HYDROCHLORIDE. [Suspect]
     Active Substance: DOXORUBICIN HYDROCHLORIDE
     Indication: ACUTE LYMPHOCYTIC LEUKAEMIA
     Dosage: REMISSION INDUCTION
     Route: 065
     Dates: start: 20170428, end: 20170511
  20. DOXORUBICIN HYDROCHLORIDE. [Suspect]
     Active Substance: DOXORUBICIN HYDROCHLORIDE
     Dosage: REMISSION INDUCTION
     Route: 065
     Dates: start: 20140609, end: 20140630
  21. DEXAMETHASONE SODIUM PHOSPHATE. [Suspect]
     Active Substance: DEXAMETHASONE SODIUM PHOSPHATE
     Dosage: REMISSION INDUCTION
     Route: 065
     Dates: start: 20170524, end: 20170526
  22. ENDOXAN 1G [Suspect]
     Active Substance: CYCLOPHOSPHAMIDE
     Indication: ACUTE LYMPHOCYTIC LEUKAEMIA
     Dosage: REMISSION INDUCTION
     Route: 065
     Dates: start: 20170428, end: 20170511
  23. DEXAMETHASONE SODIUM PHOSPHATE. [Suspect]
     Active Substance: DEXAMETHASONE SODIUM PHOSPHATE
     Dosage: REMISSION INDUCTION
     Route: 065
     Dates: start: 20170620, end: 20170703
  24. FLUCONAZOLE. [Concomitant]
     Active Substance: FLUCONAZOLE
     Indication: PRODUCT USED FOR UNKNOWN INDICATION
     Route: 065
     Dates: start: 20170428, end: 20170730
  25. HYDROCORTONE [Concomitant]
     Active Substance: HYDROCORTISONE
     Indication: PRODUCT USED FOR UNKNOWN INDICATION
     Route: 065
  26. ONCOVIN [Suspect]
     Active Substance: VINCRISTINE SULFATE
     Dosage: REMISSION INDUCTION
     Route: 065
     Dates: start: 20170620, end: 20170703
  27. DEXAMETHASONE SODIUM PHOSPHATE. [Suspect]
     Active Substance: DEXAMETHASONE SODIUM PHOSPHATE
     Dosage: REMISSION INDUCTION
     Route: 065
     Dates: start: 20140609, end: 20140630

REACTIONS (7)
  - Anaemia [Recovered/Resolved]
  - Glaucoma [Not Recovered/Not Resolved]
  - Pyrexia [Recovering/Resolving]
  - Platelet count decreased [Recovered/Resolved]
  - White blood cell count decreased [Recovered/Resolved]
  - Viral parotitis [Recovering/Resolving]
  - Drug eruption [Recovering/Resolving]

NARRATIVE: CASE EVENT DATE: 20170505
